FAERS Safety Report 13370154 (Version 3)
Quarter: 2018Q2

REPORT INFORMATION
  Report Type: Report from Study
  Country: US (occurrence: US)
  Receive Date: 20170324
  Receipt Date: 20180621
  Transmission Date: 20180711
  Serious: Yes (Other)
  Sender: FDA-Public Use
  Company Number: US-JAZZ-2017-US-003064

PATIENT
  Sex: Male

DRUGS (32)
  1. ROPINIROLE HCL [Concomitant]
     Active Substance: ROPINIROLE HYDROCHLORIDE
  2. ACTOS [Concomitant]
     Active Substance: PIOGLITAZONE HYDROCHLORIDE
  3. SALMO SALAR OIL [Concomitant]
     Active Substance: ATLANTIC SALMON OIL
  4. HYDROCODONE-IBUPROFEN [Concomitant]
     Active Substance: HYDROCODONE BITARTRATE\IBUPROFEN
  5. XYREM [Suspect]
     Active Substance: SODIUM OXYBATE
     Indication: CATAPLEXY
     Dosage: 3.75 G, BID
     Route: 048
     Dates: start: 201308, end: 201309
  6. XYREM [Suspect]
     Active Substance: SODIUM OXYBATE
     Dosage: 4.5 G, BID
     Route: 048
     Dates: start: 201309
  7. KLONOPIN [Suspect]
     Active Substance: CLONAZEPAM
     Indication: MOVEMENT DISORDER
  8. FLUTICASONE PROPIONATE. [Concomitant]
     Active Substance: FLUTICASONE PROPIONATE
  9. HYDROXYZINE HYDROCHLORIDE. [Concomitant]
     Active Substance: HYDROXYZINE HYDROCHLORIDE
  10. LEVEMIR [Concomitant]
     Active Substance: INSULIN DETEMIR
  11. TESTOSTERONE. [Concomitant]
     Active Substance: TESTOSTERONE
  12. PARACETAMOL [Concomitant]
     Active Substance: ACETAMINOPHEN
  13. TOUJEO [Concomitant]
     Active Substance: INSULIN GLARGINE
  14. SERTRALINE HCL [Concomitant]
     Active Substance: SERTRALINE HYDROCHLORIDE
  15. BUSPIRONE HCL [Concomitant]
     Active Substance: BUSPIRONE HYDROCHLORIDE
  16. XANTOFYL [Concomitant]
  17. XYREM [Suspect]
     Active Substance: SODIUM OXYBATE
     Indication: NARCOLEPSY
     Dosage: 3 G, BID
     Route: 048
     Dates: start: 201308, end: 201308
  18. VYTORIN [Concomitant]
     Active Substance: EZETIMIBE\SIMVASTATIN
  19. SIMVASTATIN. [Concomitant]
     Active Substance: SIMVASTATIN
  20. TYLENOL ARTHRITIS PAIN [Concomitant]
     Active Substance: ACETAMINOPHEN
  21. ZETIA [Concomitant]
     Active Substance: EZETIMIBE
  22. BYDUREON [Concomitant]
     Active Substance: EXENATIDE
  23. COENZYME Q10 [Concomitant]
     Active Substance: UBIDECARENONE
  24. VITAMIN D3 [Concomitant]
     Active Substance: CHOLECALCIFEROL
  25. CYANOCOBALAMIN. [Concomitant]
     Active Substance: CYANOCOBALAMIN
  26. NUVIGIL [Concomitant]
     Active Substance: ARMODAFINIL
  27. MELATONIN [Concomitant]
     Active Substance: MELATONIN
  28. PRISTIQ EXTENDED-RELEASE [Concomitant]
     Active Substance: DESVENLAFAXINE SUCCINATE
  29. OLANZAPINE. [Concomitant]
     Active Substance: OLANZAPINE
  30. DEPLIN [Concomitant]
     Active Substance: LEVOMEFOLATE CALCIUM
  31. ASCORBIC ACID. [Concomitant]
     Active Substance: ASCORBIC ACID
  32. VITAMIN B-6 [Concomitant]
     Active Substance: PYRIDOXINE

REACTIONS (6)
  - Dizziness [Not Recovered/Not Resolved]
  - Memory impairment [Not Recovered/Not Resolved]
  - Movement disorder [Recovering/Resolving]
  - Condition aggravated [Recovering/Resolving]
  - Fall [Recovered/Resolved]
  - Epilepsy [Not Recovered/Not Resolved]
